FAERS Safety Report 9999549 (Version 1)
Quarter: 2014Q1

REPORT INFORMATION
  Report Type: Spontaneous
  Country: DE (occurrence: DE)
  Receive Date: 20140312
  Receipt Date: 20140312
  Transmission Date: 20141002
  Serious: Yes (Congenital Anomaly, Other)
  Sender: FDA-Public Use
  Company Number: DE-JNJFOC-20140302786

PATIENT
  Age: 1 Day
  Sex: Female
  Weight: 2.59 kg

DRUGS (4)
  1. REMICADE [Suspect]
     Indication: CROHN^S DISEASE
     Dosage: ^MOTHER^S DOSING^
     Route: 064
  2. AZATHIOPRINE [Suspect]
     Indication: CROHN^S DISEASE
     Dosage: MOTHER^S DOSING
     Route: 064
     Dates: start: 20120909, end: 20130725
  3. PREDNISOLONE [Suspect]
     Indication: CROHN^S DISEASE
     Dosage: DOSE: 5 [MG/2D].??MOTHER^S DOSING
     Route: 064
     Dates: start: 20121108, end: 20121125
  4. FOLIC ACID [Concomitant]
     Indication: PROPHYLAXIS OF NEURAL TUBE DEFECT
     Dosage: MOTHER^S DOSING.
     Route: 064

REACTIONS (6)
  - Neonatal respiratory distress syndrome [Recovered/Resolved]
  - Atrial septal defect [Not Recovered/Not Resolved]
  - Patent ductus arteriosus [Recovered/Resolved]
  - Neonatal pneumonia [Recovered/Resolved]
  - Foetal exposure during pregnancy [Recovered/Resolved]
  - Premature baby [Not Recovered/Not Resolved]
